FAERS Safety Report 5685177-2 (Version None)
Quarter: 2008Q1

REPORT INFORMATION
  Report Type: 
  Country: None (occurrence: None)
  Receive Date: 20080328
  Receipt Date: 20080318
  Transmission Date: 20080703
  Serious: No
  Sender: FDA-Public Use
  Company Number: JP-PFIZER INC-2008023530

PATIENT
  Age: 78 Year
  Sex: Female

DRUGS (7)
  1. NORVASC [Suspect]
     Indication: HYPERTENSION
     Route: 048
     Dates: start: 20080131, end: 20080229
  2. ARICEPT [Suspect]
     Indication: DEMENTIA ALZHEIMER'S TYPE
     Route: 048
     Dates: start: 20080205, end: 20080214
  3. ARICEPT [Suspect]
     Route: 048
     Dates: start: 20080215, end: 20080301
  4. LITHIUM CARBONATE [Suspect]
     Indication: BIPOLAR I DISORDER
     Route: 048
     Dates: start: 20071210, end: 20080229
  5. DIOVAN [Concomitant]
     Indication: HYPERTENSION
     Route: 048
  6. MIGLITOL [Concomitant]
     Indication: DIABETES MELLITUS
     Route: 048
  7. MEVALOTIN [Concomitant]
     Route: 048

REACTIONS (1)
  - NO ADVERSE EVENT [None]
